FAERS Safety Report 5517861-5 (Version None)
Quarter: 2007Q4

REPORT INFORMATION
  Report Type: 
  Country: None (occurrence: None)
  Receive Date: 20071113
  Receipt Date: 20071106
  Transmission Date: 20080405
  Serious: Yes (Death, Hospitalization)
  Sender: FDA-Public Use
  Company Number: 163-21880-07021133

PATIENT
  Age: 51 Year
  Sex: Female

DRUGS (2)
  1. REVLIMID [Suspect]
     Indication: MULTIPLE MYELOMA
     Dosage: 10 MG, 1 IN 1 D, ORAL; 25 MG, 1 IN 1 D, ORAL
     Route: 048
     Dates: start: 20070126, end: 20070201
  2. REVLIMID [Suspect]
     Indication: MULTIPLE MYELOMA
     Dosage: 10 MG, 1 IN 1 D, ORAL; 25 MG, 1 IN 1 D, ORAL
     Route: 048
     Dates: start: 20070201

REACTIONS (3)
  - DISEASE PROGRESSION [None]
  - MULTIPLE MYELOMA [None]
  - PANCYTOPENIA [None]
